FAERS Safety Report 8284070-9 (Version None)
Quarter: 2012Q2

REPORT INFORMATION
  Report Type: 
  Country: None (occurrence: None)
  Receive Date: 20120413
  Receipt Date: 20110822
  Transmission Date: 20120825
  Serious: No
  Sender: FDA-Public Use
  Company Number: US-ASTRAZENECA-2011SE27524

PATIENT
  Age: 58 Year
  Sex: Female

DRUGS (4)
  1. TOPROL-XL [Suspect]
     Route: 048
  2. NEXIUM [Suspect]
     Route: 048
     Dates: end: 20110515
  3. NEXIUM [Suspect]
     Route: 048
  4. TOPROL-XL [Suspect]
     Route: 048
     Dates: end: 20110515

REACTIONS (4)
  - DRUG DOSE OMISSION [None]
  - NEUROPATHY PERIPHERAL [None]
  - GOUT [None]
  - MALAISE [None]
